FAERS Safety Report 7449430-4 (Version None)
Quarter: 2011Q2

REPORT INFORMATION
  Report Type: 
  Country: None (occurrence: None)
  Receive Date: 20110502
  Receipt Date: 20110422
  Transmission Date: 20111010
  Serious: No
  Sender: FDA-Public Use
  Company Number: US-BIOGENIDEC-2011BI015218

PATIENT
  Age: 61 Year
  Sex: Female

DRUGS (3)
  1. AVONEX [Suspect]
     Indication: MULTIPLE SCLEROSIS
     Route: 030
     Dates: start: 20001017
  2. AVONEX [Suspect]
     Route: 030
     Dates: start: 20110201
  3. AVONEX [Suspect]
     Route: 030
     Dates: end: 20101101

REACTIONS (2)
  - LIVER FUNCTION TEST ABNORMAL [None]
  - OPTIC NEURITIS [None]
